FAERS Safety Report 7121482-0 (Version None)
Quarter: 2010Q4

REPORT INFORMATION
  Report Type: 
  Country: None (occurrence: None)
  Receive Date: 20101119
  Receipt Date: 20101119
  Transmission Date: 20110411
  Serious: Yes (Hospitalization)
  Sender: FDA-Public Use
  Company Number: None

PATIENT
  Age: 31 Year
  Sex: Female
  Weight: 101.5 kg

DRUGS (2)
  1. TOPIRAMATE [Suspect]
     Indication: BENIGN INTRACRANIAL HYPERTENSION
     Dosage: 25 MG EVERY DAY PO
     Route: 048
     Dates: start: 20100705, end: 20100710
  2. ACETAZOLAMIDE [Suspect]
     Indication: BENIGN INTRACRANIAL HYPERTENSION
     Dosage: 250 MG EVERY DAY PO
     Route: 048
     Dates: start: 20100705, end: 20100710

REACTIONS (3)
  - CONTUSION [None]
  - DYSPNOEA [None]
  - RASH [None]
